FAERS Safety Report 6341874-7 (Version None)
Quarter: 2009Q3

REPORT INFORMATION
  Report Type: 
  Country: None (occurrence: None)
  Receive Date: 20090904
  Receipt Date: 20090824
  Transmission Date: 20100115
  Serious: Yes (Death, Other)
  Sender: FDA-Public Use
  Company Number: CA-GENENTECH-287796

PATIENT
  Sex: Female

DRUGS (1)
  1. AVASTIN [Suspect]
     Indication: BREAST CANCER
     Dosage: 510 MG, Q2W
     Route: 042
     Dates: start: 20090417, end: 20090713

REACTIONS (2)
  - DEATH [None]
  - INTESTINAL PERFORATION [None]
